FAERS Safety Report 15862585 (Version 1)
Quarter: 2019Q1

REPORT INFORMATION
  Report Type: Spontaneous
  Country: US (occurrence: US)
  Receive Date: 20190124
  Receipt Date: 20190124
  Transmission Date: 20190417
  Serious: Yes (Other)
  Sender: FDA-Public Use
  Company Number: US-PFIZER INC-2019023355

PATIENT
  Sex: Female
  Weight: 53.52 kg

DRUGS (2)
  1. DRISTAN COLD MULTISYMPTOM [Suspect]
     Active Substance: ACETAMINOPHEN\CHLORPHENIRAMINE MALEATE\PHENYLEPHRINE HYDROCHLORIDE
     Indication: HYPERSENSITIVITY
     Dosage: 2 TABLETS, AS NEEDED
     Route: 048
  2. DRISTAN COLD MULTISYMPTOM [Suspect]
     Active Substance: ACETAMINOPHEN\CHLORPHENIRAMINE MALEATE\PHENYLEPHRINE HYDROCHLORIDE
     Indication: SINUS HEADACHE

REACTIONS (3)
  - Cardiac disorder [Not Recovered/Not Resolved]
  - Neoplasm malignant [Recovering/Resolving]
  - Intentional product misuse [Unknown]
